FAERS Safety Report 13292715 (Version 1)
Quarter: 2017Q1

REPORT INFORMATION
  Report Type: Spontaneous
  Country: JP (occurrence: JP)
  Receive Date: 20170303
  Receipt Date: 20170303
  Transmission Date: 20170428
  Serious: Yes (Other)
  Sender: FDA-Public Use
  Company Number: PHJP2017JP006783

PATIENT
  Sex: Female

DRUGS (1)
  1. CARBAMAZEPINE. [Suspect]
     Active Substance: CARBAMAZEPINE
     Indication: PRODUCT USED FOR UNKNOWN INDICATION
     Dosage: UNK
     Route: 048

REACTIONS (17)
  - Pyrexia [Unknown]
  - Drug reaction with eosinophilia and systemic symptoms [Recovering/Resolving]
  - Headache [Unknown]
  - Human herpes virus 6 serology positive [Unknown]
  - Colitis ulcerative [Recovering/Resolving]
  - Diarrhoea [Recovering/Resolving]
  - Generalised erythema [Unknown]
  - Gastrointestinal ulcer [Unknown]
  - Mucosal inflammation [Recovering/Resolving]
  - Pseudomembranous colitis [Recovering/Resolving]
  - Gastrointestinal wall thickening [Recovering/Resolving]
  - Clostridium difficile infection [Unknown]
  - Large intestine erosion [Recovering/Resolving]
  - Mucosal hyperaemia [Recovering/Resolving]
  - Hepatic function abnormal [Unknown]
  - Rectal discharge [Recovering/Resolving]
  - Pruritus generalised [Unknown]
